FAERS Safety Report 10575368 (Version 1)
Quarter: 2014Q4

REPORT INFORMATION
  Report Type: Spontaneous
  Country: US (occurrence: None)
  Receive Date: 20141107
  Receipt Date: 20141107
  Transmission Date: 20150529
  Serious: Yes (Other)
  Sender: FDA-Public Use
  Company Number: 2014100066

PATIENT
  Age: 53 Year
  Sex: Male

DRUGS (11)
  1. ROWASA [Suspect]
     Active Substance: MESALAMINE
     Dosage: AT NIGHT (4 GM, 1 IN 1 D)
  2. LANTUS [Concomitant]
     Active Substance: INSULIN GLARGINE
  3. FUROSEMIDE. [Concomitant]
     Active Substance: FUROSEMIDE
  4. SUCRALFATE (SUCRALFATE) UNKNOWN [Concomitant]
     Active Substance: SUCRALFATE
  5. NEXIUM [Concomitant]
     Active Substance: ESOMEPRAZOLE MAGNESIUM
  6. CHOLESTYRAMINE (COLESTYRAMINE) (COLESTYRAMINE) [Concomitant]
  7. HUMIRA [Suspect]
     Active Substance: ADALIMUMAB
     Indication: COLITIS ULCERATIVE
     Route: 058
     Dates: start: 20140321, end: 201407
  8. BALSALAZIDE [Suspect]
     Active Substance: BALSALAZIDE
     Dosage: 2250 MG (750 MG, 3 IN 1 D), ORAL
     Route: 048
  9. LIALDA (MESALAMINE DELAYED RELEASE (TABLET) [Concomitant]
  10. METRONIDAZOLE (METRONIDAZOLE (CAPSULE)) [Concomitant]
  11. STEROIDS [Suspect]
     Active Substance: UNSPECIFIED INGREDIENT

REACTIONS (6)
  - Defaecation urgency [None]
  - Haematochezia [None]
  - Abdominal pain upper [None]
  - Diarrhoea [None]
  - Clostridium difficile infection [None]
  - Intracranial pressure increased [None]

NARRATIVE: CASE EVENT DATE: 20140602
